FAERS Safety Report 20459502 (Version 1)
Quarter: 2022Q1

REPORT INFORMATION
  Report Type: Spontaneous
  Country: JP (occurrence: JP)
  Receive Date: 20220211
  Receipt Date: 20220211
  Transmission Date: 20220424
  Serious: Yes (Other)
  Sender: FDA-Public Use
  Company Number: JP-SA-SAC20220208001590

PATIENT
  Sex: Male

DRUGS (2)
  1. XYZAL [Suspect]
     Active Substance: LEVOCETIRIZINE DIHYDROCHLORIDE
     Indication: Dermatitis
     Dosage: 15 MG, 2 TO 3 TIMES
     Route: 065
     Dates: start: 202201
  2. CALONAL [Concomitant]
     Active Substance: ACETAMINOPHEN

REACTIONS (7)
  - Dizziness [Unknown]
  - Fall [Unknown]
  - Pyrexia [Not Recovered/Not Resolved]
  - Nightmare [Unknown]
  - Accidental overdose [Unknown]
  - Haemangioma of skin [Unknown]
  - Product use in unapproved indication [Unknown]

NARRATIVE: CASE EVENT DATE: 20220101
